FAERS Safety Report 8736639 (Version 2)
Quarter: 2012Q4

REPORT INFORMATION
  Report Type: 
  Country: CN (occurrence: CN)
  Receive Date: 20120822
  Receipt Date: 20120904
  Transmission Date: 20130627
  Serious: Yes (Other)
  Sender: FDA-Public Use
  Company Number: CN-PFIZER INC-2012202916

PATIENT
  Age: 65 Year
  Sex: Male

DRUGS (11)
  1. LIPITOR [Suspect]
     Dosage: 20 mg, UNK
     Dates: start: 20120725, end: 20120820
  2. ACETYLSALICYLIC ACID [Concomitant]
     Dosage: 0.1 g, UNK
  3. TRIMETAZIDINE [Concomitant]
     Dosage: 20 mg, 3x/day
  4. RABEPRAZOLE [Concomitant]
     Dosage: 20 mg, UNK
  5. AMLODIPINE [Concomitant]
     Dosage: 5 mg, UNK
  6. VALSARTAN [Concomitant]
     Dosage: 80 mg, UNK
  7. GLIMEPIRIDE [Concomitant]
     Dosage: 2 mg, UNK
  8. NICERGOLINE [Concomitant]
     Dosage: 5 mg, UNK
  9. WARFARIN [Concomitant]
     Dosage: UNK
     Dates: start: 20120810
  10. VOGLIBOSE [Concomitant]
     Dosage: 0.2
  11. ISOSORBIDE MONONITRATE [Concomitant]
     Dosage: 20 mg, UNK

REACTIONS (3)
  - Drug interaction [Unknown]
  - Blood creatine phosphokinase increased [Recovering/Resolving]
  - Nasopharyngitis [Unknown]
